FAERS Safety Report 24311183 (Version 1)
Quarter: 2024Q3

REPORT INFORMATION
  Report Type: Spontaneous
  Country: US (occurrence: US)
  Receive Date: 20240912
  Receipt Date: 20240912
  Transmission Date: 20241017
  Serious: Yes (Other)
  Sender: AMGEN
  Company Number: US-AMGEN-USASP2024178046

PATIENT

DRUGS (3)
  1. KYPROLIS [Suspect]
     Active Substance: CARFILZOMIB
     Indication: Product used for unknown indication
     Dosage: UNK
     Route: 065
  2. KYPROLIS [Suspect]
     Active Substance: CARFILZOMIB
     Dosage: UNK  (REDUCE THE DOSE OF KYPROLIS FOR A PATIENT MULTIPLE TIMES/E TOOK THE PATIENT OFF TREATMENT)
     Route: 065
  3. KYPROLIS [Suspect]
     Active Substance: CARFILZOMIB
     Dosage: UNK (RESTART THE TREATMENT AND PATIENT WAS ON MAINTENANCE TREATMENT )
     Route: 065

REACTIONS (2)
  - Plasma cell myeloma recurrent [Unknown]
  - Therapy interrupted [Unknown]
